FAERS Safety Report 6001102-9 (Version None)
Quarter: 2008Q4

REPORT INFORMATION
  Report Type: 
  Country: None (occurrence: None)
  Receive Date: 20081215
  Receipt Date: 20071218
  Transmission Date: 20090506
  Serious: No
  Sender: FDA-Public Use
  Company Number: US-AMGEN-KDL249373

PATIENT
  Sex: Male
  Weight: 109 kg

DRUGS (5)
  1. ENBREL [Suspect]
     Indication: PSORIATIC ARTHROPATHY
     Route: 058
     Dates: start: 20030125
  2. ENBREL [Suspect]
     Indication: PSORIASIS
  3. PREVACID [Concomitant]
     Dates: start: 20020101
  4. ZYRTEC [Concomitant]
     Dates: start: 20030101
  5. BISOPROLOL FUMARATE [Concomitant]
     Dates: start: 20040101

REACTIONS (3)
  - HYPERSENSITIVITY [None]
  - NASAL SEPTUM DEVIATION [None]
  - SINUSITIS [None]
